FAERS Safety Report 8538554-6 (Version None)
Quarter: 2012Q3

REPORT INFORMATION
  Report Type: 
  Country: None (occurrence: None)
  Receive Date: 20120718
  Receipt Date: 20120718
  Transmission Date: 20120928
  Serious: No
  Sender: FDA-Public Use
  Company Number: None

PATIENT
  Age: 76 Year
  Sex: Female
  Weight: 74.8435 kg

DRUGS (1)
  1. METOPROLOL TARTRATE [Suspect]
     Indication: BLOOD PRESSURE
     Dosage: 6-19 - 20 + 21

REACTIONS (6)
  - NAUSEA [None]
  - DIZZINESS [None]
  - VISION BLURRED [None]
  - ABASIA [None]
  - DRUG HYPERSENSITIVITY [None]
  - DIARRHOEA [None]
